FAERS Safety Report 7096004-3 (Version None)
Quarter: 2010Q4

REPORT INFORMATION
  Report Type: 
  Country: None (occurrence: None)
  Receive Date: 20101111
  Receipt Date: 20091124
  Transmission Date: 20110411
  Serious: No
  Sender: FDA-Public Use
  Company Number: US-KINGPHARMUSA00001-K200901441

PATIENT
  Age: 37 Year
  Sex: Male

DRUGS (5)
  1. EMBEDA [Suspect]
     Indication: BACK DISORDER
     Dosage: 200 MG IN AM AND 100 MG AT NIGHT
     Route: 065
     Dates: start: 20091101
  2. EMBEDA [Suspect]
     Indication: MUSCULOSKELETAL DISCOMFORT
  3. EMBEDA [Suspect]
     Indication: ARTHRALGIA
  4. CIALIS [Concomitant]
  5. PERCOCET [Concomitant]
     Indication: BREAKTHROUGH PAIN

REACTIONS (1)
  - GENERALISED ERYTHEMA [None]
